FAERS Safety Report 5589517-4 (Version None)
Quarter: 2008Q1

REPORT INFORMATION
  Report Type: 
  Country: None (occurrence: None)
  Receive Date: 20080109
  Receipt Date: 20071226
  Transmission Date: 20080703
  Serious: Yes (Hospitalization)
  Sender: FDA-Public Use
  Company Number: TCI2007A07053

PATIENT
  Age: 82 Year
  Sex: Female

DRUGS (7)
  1. ACTOS [Suspect]
     Indication: DIABETES MELLITUS
     Dosage: 15 MG (15 MG, 1 D) PER ORAL
     Route: 048
  2. PRAVASTATIN [Concomitant]
  3. OLMETEC (OLMESARTAN MEDOXOMIL) [Concomitant]
  4. CALBLOCK (AZELNIDIPINE) [Concomitant]
  5. DAONIL (GLIBENCLAMIDE) [Concomitant]
  6. URSO 250 [Concomitant]
  7. KOLANTYL (DICYCLOVERINE HYDROCHLORIDE, MAGNESIUM OXIDE, METHYLCELLULOS [Concomitant]

REACTIONS (2)
  - ACUTE MYOCARDIAL INFARCTION [None]
  - CARDIAC FAILURE ACUTE [None]
